FAERS Safety Report 15601696 (Version 1)
Quarter: 2018Q4

REPORT INFORMATION
  Report Type: Other
  Country: AT (occurrence: AT)
  Receive Date: 20181109
  Receipt Date: 20181109
  Transmission Date: 20190205
  Serious: Yes (Death, Life-Threatening, Other)
  Sender: FDA-Public Use
  Company Number: AT-ASTELLAS-2018US048314

PATIENT
  Sex: Male

DRUGS (7)
  1. ECALTA [Suspect]
     Active Substance: ANIDULAFUNGIN
     Dosage: UNK UNK, UNKNOWN FREQ.
     Route: 065
  2. ECALTA [Suspect]
     Active Substance: ANIDULAFUNGIN
     Indication: FUNGAL INFECTION
     Dosage: UNK UNK, UNKNOWN FREQ.
     Route: 065
  3. METRONIDAZOLE. [Suspect]
     Active Substance: METRONIDAZOLE
     Indication: PRODUCT USED FOR UNKNOWN INDICATION
     Dosage: UNK UNK, UNKNOWN FREQ.
     Route: 065
  4. AMPHOTERICIN B, LIPOSOME [Suspect]
     Active Substance: AMPHOTERICIN B
     Indication: PRODUCT USED FOR UNKNOWN INDICATION
     Dosage: UNK UNK, UNKNOWN FREQ.
     Route: 065
  5. DORIBAX /05512401/ [Suspect]
     Active Substance: DORIPENEM
     Indication: PRODUCT USED FOR UNKNOWN INDICATION
     Dosage: UNK UNK, UNKNOWN FREQ.
     Route: 065
  6. CEFOTAXIME [Suspect]
     Active Substance: CEFOTAXIME SODIUM
     Indication: PRODUCT USED FOR UNKNOWN INDICATION
     Dosage: UNK UNK, UNKNOWN FREQ.
     Route: 065
  7. TYGACIL [Suspect]
     Active Substance: TIGECYCLINE
     Indication: PRODUCT USED FOR UNKNOWN INDICATION
     Dosage: UNK UNK, UNKNOWN FREQ.
     Route: 065

REACTIONS (1)
  - Toxic epidermal necrolysis [Fatal]
